FAERS Safety Report 23997822 (Version 1)
Quarter: 2024Q2

REPORT INFORMATION
  Report Type: Spontaneous
  Country: RU (occurrence: RU)
  Receive Date: 20240621
  Receipt Date: 20240621
  Transmission Date: 20240715
  Serious: Yes (Death, Hospitalization)
  Sender: FDA-Public Use
  Company Number: RU-BoehringerIngelheim-2024-BI-035026

PATIENT
  Sex: Female

DRUGS (1)
  1. JARDIANCE [Suspect]
     Active Substance: EMPAGLIFLOZIN
     Indication: Type 2 diabetes mellitus
     Route: 048
     Dates: start: 202303, end: 202404

REACTIONS (3)
  - Ketoacidosis [Fatal]
  - Pyelonephritis [Fatal]
  - Coma [Fatal]

NARRATIVE: CASE EVENT DATE: 20240401
